FAERS Safety Report 18012965 (Version 1)
Quarter: 2020Q3

REPORT INFORMATION
  Report Type: Spontaneous
  Country: US (occurrence: US)
  Receive Date: 20200710
  Receipt Date: 20200710
  Transmission Date: 20201103
  Serious: No
  Sender: FDA-Public Use
  Company Number: None

PATIENT
  Age: 61 Year
  Sex: Female

DRUGS (1)
  1. RYDAPT [Suspect]
     Active Substance: MIDOSTAURIN
     Route: 048
     Dates: start: 20200601, end: 20200627

REACTIONS (5)
  - Nausea [None]
  - Fatigue [None]
  - Escherichia bacteraemia [None]
  - Rash [None]
  - Hypertension [None]

NARRATIVE: CASE EVENT DATE: 20200601
